FAERS Safety Report 6398017-3 (Version None)
Quarter: 2009Q4

REPORT INFORMATION
  Report Type: 
  Country: None (occurrence: None)
  Receive Date: 20091013
  Receipt Date: 20090930
  Transmission Date: 20100525
  Serious: Yes (Hospitalization, Other)
  Sender: FDA-Public Use
  Company Number: US-ROCHE-649336

PATIENT
  Sex: Male
  Weight: 111.6 kg

DRUGS (6)
  1. PEGASYS [Suspect]
     Indication: HEPATITIS C
     Dosage: DOSE REPORTED AS 180 MCG/0.5 ML
     Route: 058
     Dates: start: 20080930, end: 20090807
  2. RIBAVIRIN [Suspect]
     Indication: HEPATITIS C
     Dosage: 3 DOSEFORM IN MORNING AND 3 IN EVENING
     Route: 048
     Dates: start: 20080930, end: 20090807
  3. ZEGERID [Concomitant]
     Dosage: START DATE: PRIOR TO 2007, FREQUENCY: DAILY
     Route: 048
  4. ZOLOFT [Concomitant]
     Indication: DEPRESSION
     Dosage: START DATE:PRIOR TO 2007, FREQUENCY:DAILY
     Route: 048
  5. LISINOPRIL [Concomitant]
     Indication: HYPERTENSION
     Dosage: START DATE:PRIOR TO 2007, FREQUENCY:DAILY
     Route: 048
  6. TOPROL-XL [Concomitant]
     Indication: HYPERTENSION
     Dosage: START DATE:PRIOR TO 2007, FREQUENCY:DAILY
     Route: 048

REACTIONS (3)
  - AGGRESSION [None]
  - DEPRESSION [None]
  - INJURY [None]
